FAERS Safety Report 4580047-5 (Version None)
Quarter: 2005Q1

REPORT INFORMATION
  Report Type: 
  Country: None (occurrence: None)
  Receive Date: 20050210
  Receipt Date: 20050129
  Transmission Date: 20050727
  Serious: Yes (Hospitalization)
  Sender: FDA-Public Use
  Company Number: 2004120033

PATIENT
  Age: 66 Year
  Sex: Male

DRUGS (4)
  1. CELEBREX [Suspect]
     Indication: OSTEOARTHRITIS
     Dosage: 200 MG (1 IN 1 D), ORAL
     Route: 048
     Dates: start: 20000413, end: 20041229
  2. NIFEDIPINE [Concomitant]
  3. GLUCOSAMINE (GLUCOSAMINE) [Concomitant]
  4. ESCITALOPRAM (ESCITALOPRAM) [Concomitant]

REACTIONS (2)
  - CHEST PAIN [None]
  - THROMBOSIS [None]
